FAERS Safety Report 12523262 (Version 1)
Quarter: 2016Q3

REPORT INFORMATION
  Report Type: Spontaneous
  Country: CO (occurrence: CO)
  Receive Date: 20160702
  Receipt Date: 20160702
  Transmission Date: 20161109
  Serious: Yes (Other)
  Sender: FDA-Public Use
  Company Number: CO-AMGEN-COLSP2016085001

PATIENT
  Age: 59 Year
  Sex: Male

DRUGS (2)
  1. INFAGEL [Concomitant]
     Dosage: UNK
     Route: 065
  2. ENBREL [Suspect]
     Active Substance: ETANERCEPT
     Indication: PRODUCT USED FOR UNKNOWN INDICATION
     Dosage: UNK MG, UNK
     Route: 058
     Dates: start: 2004

REACTIONS (1)
  - Hernia [Unknown]

NARRATIVE: CASE EVENT DATE: 2006
